FAERS Safety Report 6124000-9 (Version None)
Quarter: 2009Q1

REPORT INFORMATION
  Report Type: 
  Country: None (occurrence: None)
  Receive Date: 20090319
  Receipt Date: 20090302
  Transmission Date: 20090719
  Serious: Yes (Death, Hospitalization)
  Sender: FDA-Public Use
  Company Number: AR-NOVOPROD-284409

PATIENT
  Sex: Male
  Weight: 1.55 kg

DRUGS (4)
  1. LEVEMIR [Suspect]
     Indication: TYPE 1 DIABETES MELLITUS
     Dosage: 30 IU, QD
     Route: 064
     Dates: start: 20070701, end: 20080527
  2. INSULIN LISPRO [Suspect]
     Dosage: 1 U, QD
     Route: 064
     Dates: end: 20080524
  3. INSULATARD [Suspect]
     Route: 064
     Dates: start: 20080527
  4. ACTRAPID HM PENFILL [Suspect]
     Route: 064
     Dates: start: 20080527

REACTIONS (7)
  - FOETAL GROWTH RETARDATION [None]
  - INTRAVENTRICULAR HAEMORRHAGE [None]
  - NEONATAL RESPIRATORY DISTRESS SYNDROME [None]
  - PNEUMOTHORAX [None]
  - PULMONARY HYPOPLASIA [None]
  - RENAL HYPOPLASIA [None]
  - SMALL FOR DATES BABY [None]
